FAERS Safety Report 9155243 (Version 5)
Quarter: 2015Q3

REPORT INFORMATION
  Report Type: Report from Study
  Country: BR (occurrence: BR)
  Receive Date: 20130311
  Receipt Date: 20150717
  Transmission Date: 20151125
  Serious: Yes (Hospitalization, Other)
  Sender: FDA-Public Use
  Company Number: BR-ROCHE-1187419

PATIENT
  Age: 37 Year
  Sex: Female
  Weight: 65 kg

DRUGS (15)
  1. METHOTREXATE [Concomitant]
     Active Substance: METHOTREXATE
  2. PHENERGAN [Concomitant]
     Active Substance: PROMETHAZINE HYDROCHLORIDE
  3. MABTHERA [Suspect]
     Active Substance: RITUXIMAB
     Indication: RHEUMATOID ARTHRITIS
     Dosage: DATE OF LAST DOSE PRIOR TO SAE:24/MAR/2014
     Route: 042
     Dates: start: 20120831
  4. AZITHROMYCIN [Concomitant]
     Active Substance: AZITHROMYCIN ANHYDROUS
  5. ATENOLOL. [Concomitant]
     Active Substance: ATENOLOL
  6. PARACETAMOL [Concomitant]
     Active Substance: ACETAMINOPHEN
  7. SPIRONOLACTONE. [Concomitant]
     Active Substance: SPIRONOLACTONE
  8. CHLOROQUINE [Concomitant]
     Active Substance: CHLOROQUINE\CHLOROQUINE PHOSPHATE
  9. PREDNISONE. [Concomitant]
     Active Substance: PREDNISONE
  10. CHLORTHALIDONE. [Concomitant]
     Active Substance: CHLORTHALIDONE
  11. CALCIUM CARBONATE. [Concomitant]
     Active Substance: CALCIUM CARBONATE
  12. OMEPRAL [Concomitant]
     Active Substance: OMEPRAZOLE
  13. ALENIA (BRAZIL) [Concomitant]
     Active Substance: BUDESONIDE\FORMOTEROL FUMARATE
  14. LOSARTAN. [Concomitant]
     Active Substance: LOSARTAN
  15. HYDROCORTISONE. [Concomitant]
     Active Substance: HYDROCORTISONE

REACTIONS (12)
  - Asthenia [Recovered/Resolved]
  - Pneumonia staphylococcal [Unknown]
  - Gait disturbance [Not Recovered/Not Resolved]
  - Joint swelling [Not Recovered/Not Resolved]
  - Pain [Not Recovered/Not Resolved]
  - Hypertension [Not Recovered/Not Resolved]
  - Osteonecrosis [Unknown]
  - Cartilage injury [Unknown]
  - Peripheral swelling [Not Recovered/Not Resolved]
  - Respiratory tract infection [Recovered/Resolved]
  - Fatigue [Recovered/Resolved]
  - Tumour lysis syndrome [Unknown]

NARRATIVE: CASE EVENT DATE: 201504
